FAERS Safety Report 4615778-1 (Version None)
Quarter: 2005Q1

REPORT INFORMATION
  Report Type: 
  Country: None (occurrence: None)
  Receive Date: 20050317
  Receipt Date: 20041217
  Transmission Date: 20050727
  Serious: Yes (Death)
  Sender: FDA-Public Use
  Company Number: 2004S1003728

PATIENT
  Age: 39 Year
  Sex: Male
  Weight: 104.3273 kg

DRUGS (1)
  1. CLONIDINE HYDROCHLORIDE TABLETS, USP (0.3 MG) [Suspect]
     Indication: HYPERTENSION
     Dosage: 0.3 MG; BID; PO
     Route: 048

REACTIONS (6)
  - ATHEROSCLEROSIS [None]
  - DRUG LEVEL [None]
  - HYPERTENSIVE HEART DISEASE [None]
  - IMPRISONMENT [None]
  - MEDICATION ERROR [None]
  - MYOCARDIAL INFARCTION [None]
